FAERS Safety Report 18634802 (Version 13)
Quarter: 2025Q3

REPORT INFORMATION
  Report Type: Spontaneous
  Country: JP (occurrence: JP)
  Receive Date: 20201218
  Receipt Date: 20250723
  Transmission Date: 20251021
  Serious: Yes (Death, Hospitalization, Other)
  Sender: ELI LILLY AND COMPANY
  Company Number: JP-ELI_LILLY_AND_COMPANY-JP202012002341

PATIENT
  Age: 58 Year
  Sex: Male
  Weight: 46.9 kg

DRUGS (41)
  1. TADALAFIL [Suspect]
     Active Substance: TADALAFIL
     Indication: Pulmonary arterial hypertension
     Route: 048
  2. TADALAFIL [Suspect]
     Active Substance: TADALAFIL
     Dosage: 40 MG, DAILY
     Route: 048
     Dates: start: 20181203
  3. UPTRAVI [Suspect]
     Active Substance: SELEXIPAG
     Indication: Pulmonary arterial hypertension
     Dosage: 0.2 MG, BID
     Route: 048
     Dates: start: 20190307, end: 20190313
  4. UPTRAVI [Suspect]
     Active Substance: SELEXIPAG
     Dosage: 0.4 MG, DAILY
     Route: 048
     Dates: start: 20190314
  5. UPTRAVI [Suspect]
     Active Substance: SELEXIPAG
     Dosage: 0.8 MG, DAILY
     Route: 048
     Dates: end: 20190421
  6. UPTRAVI [Suspect]
     Active Substance: SELEXIPAG
     Dosage: 0.6 MG, DAILY
     Route: 048
     Dates: start: 20190422, end: 20190508
  7. UPTRAVI [Suspect]
     Active Substance: SELEXIPAG
     Dosage: 0.4 MG, DAILY
     Route: 048
     Dates: start: 20190509, end: 20190605
  8. UPTRAVI [Suspect]
     Active Substance: SELEXIPAG
     Dosage: 0.2 MG, BID
     Route: 048
     Dates: start: 20190606, end: 20190731
  9. UPTRAVI [Suspect]
     Active Substance: SELEXIPAG
     Dosage: 0.4 MG, DAILY
     Route: 048
     Dates: start: 20190801, end: 20190904
  10. UPTRAVI [Suspect]
     Active Substance: SELEXIPAG
     Dosage: 0.8 MG, DAILY
     Route: 048
     Dates: start: 20190905, end: 20190918
  11. UPTRAVI [Suspect]
     Active Substance: SELEXIPAG
     Dosage: 1.0 MG, DAILY
     Route: 048
     Dates: start: 20190919, end: 20191016
  12. UPTRAVI [Suspect]
     Active Substance: SELEXIPAG
     Dosage: 1.2 MG, DAILY
     Route: 048
     Dates: start: 20191017, end: 20191030
  13. UPTRAVI [Suspect]
     Active Substance: SELEXIPAG
     Dosage: 1.6 MG, DAILY
     Route: 048
     Dates: start: 20191031, end: 20191211
  14. UPTRAVI [Suspect]
     Active Substance: SELEXIPAG
     Dosage: 1.2 MG, BID
     Route: 048
     Dates: start: 20191212
  15. UPTRAVI [Suspect]
     Active Substance: SELEXIPAG
     Dosage: 0.8 MG, BID
     Route: 048
     Dates: end: 20200501
  16. UPTRAVI [Suspect]
     Active Substance: SELEXIPAG
     Dosage: 1.6 MG, DAILY
     Route: 048
  17. UPTRAVI [Suspect]
     Active Substance: SELEXIPAG
     Dosage: 3.2 MG, DAILY
     Route: 048
  18. OPSUMIT [Suspect]
     Active Substance: MACITENTAN
     Indication: Pulmonary arterial hypertension
     Dosage: 10 MG, DAILY
     Route: 048
     Dates: start: 20181207
  19. OPSUMIT [Suspect]
     Active Substance: MACITENTAN
     Route: 048
     Dates: start: 202402
  20. OPSUMIT [Suspect]
     Active Substance: MACITENTAN
     Dosage: 5 MG, DAILY
     Route: 048
  21. SPIRONOLACTONE [Suspect]
     Active Substance: SPIRONOLACTONE
     Indication: Hypertension
     Dosage: 12.5 MG, DAILY
     Route: 048
  22. SPIRONOLACTONE [Suspect]
     Active Substance: SPIRONOLACTONE
     Indication: Cardiac failure
     Dosage: 25 MG, DAILY
     Route: 048
     Dates: start: 20190905, end: 20200206
  23. ASPIRIN [Suspect]
     Active Substance: ASPIRIN
     Indication: Angina pectoris
     Dosage: 100 MG, DAILY
     Route: 048
  24. ASPIRIN [Suspect]
     Active Substance: ASPIRIN
     Indication: Peripheral arterial occlusive disease
  25. LOPERAMIDE [Concomitant]
     Active Substance: LOPERAMIDE
     Indication: Diarrhoea
     Dosage: 2 MG, DAILY
     Route: 048
  26. LOPERAMIDE [Concomitant]
     Active Substance: LOPERAMIDE
     Dosage: 1 MG, UNKNOWN
     Route: 048
     Dates: start: 20190822
  27. MIYA-BM [Concomitant]
     Active Substance: CLOSTRIDIUM BUTYRICUM SPORES STRAIN M-55
     Indication: Prophylaxis
     Route: 065
  28. MIYA-BM [Concomitant]
     Active Substance: CLOSTRIDIUM BUTYRICUM SPORES STRAIN M-55
     Indication: Diarrhoea
     Dosage: 2 G, DAILY
     Route: 048
     Dates: start: 20190422
  29. ESOMEPRAZOLE MAGNESIUM [Concomitant]
     Active Substance: ESOMEPRAZOLE MAGNESIUM
     Indication: Gastrooesophageal reflux disease
     Dosage: 20 MG, DAILY
     Route: 048
  30. LASIX [Concomitant]
     Active Substance: FUROSEMIDE
     Indication: Hypertension
     Dosage: 20 UNK
  31. LASIX [Concomitant]
     Active Substance: FUROSEMIDE
     Dosage: 10 MG, DAILY
     Route: 048
     Dates: start: 20181114
  32. LASIX [Concomitant]
     Active Substance: FUROSEMIDE
     Dosage: 20 MG, DAILY
     Route: 048
     Dates: start: 20181220
  33. BENIDIPINE HYDROCHLORIDE [Concomitant]
     Active Substance: BENIDIPINE HYDROCHLORIDE
     Indication: Hypertension
     Dosage: 4 MG, DAILY
     Route: 048
     Dates: start: 20181207
  34. BENIDIPINE HYDROCHLORIDE [Concomitant]
     Active Substance: BENIDIPINE HYDROCHLORIDE
     Indication: Angina pectoris
  35. CRESTOR [Concomitant]
     Active Substance: ROSUVASTATIN CALCIUM
     Indication: Dyslipidaemia
     Dosage: 2.5 MG, DAILY
     Route: 048
     Dates: start: 20100514
  36. CRESTOR [Concomitant]
     Active Substance: ROSUVASTATIN CALCIUM
     Indication: Hyperlipidaemia
  37. CILOSTAZOL [Concomitant]
     Active Substance: CILOSTAZOL
     Indication: Peripheral arterial occlusive disease
     Dosage: 200 MG, DAILY
     Route: 048
     Dates: start: 20190606, end: 20190919
  38. SAMSCA [Concomitant]
     Active Substance: TOLVAPTAN
     Indication: Right ventricular failure
     Dosage: 7.5 MG, DAILY
     Route: 048
     Dates: start: 20220330
  39. AMLODIPINE [Concomitant]
     Active Substance: AMLODIPINE BESYLATE
     Dosage: 5 MG, DAILY
     Route: 048
  40. ROSUVASTATIN [Concomitant]
     Active Substance: ROSUVASTATIN
     Dosage: 2.5 MG, DAILY
     Route: 048
  41. EPLERENONE [Concomitant]
     Active Substance: EPLERENONE
     Dosage: 50 MG, DAILY
     Route: 048

REACTIONS (22)
  - Road traffic accident [Fatal]
  - Gastrointestinal submucosal tumour [Not Recovered/Not Resolved]
  - Pulmonary congestion [Recovering/Resolving]
  - Right ventricular failure [Recovered/Resolved]
  - Oedema [Recovering/Resolving]
  - Gamma-glutamyltransferase abnormal [Unknown]
  - Cardiac failure [Recovering/Resolving]
  - Cardiac failure [Recovering/Resolving]
  - Diarrhoea [Recovering/Resolving]
  - Gynaecomastia [Recovered/Resolved]
  - Gynaecomastia [Recovered/Resolved]
  - Peripheral arterial occlusive disease [Recovering/Resolving]
  - Large intestine polyp [Recovered/Resolved]
  - Infected dermal cyst [Recovered/Resolved]
  - Lipoma [Recovered/Resolved]
  - Lipoma [Recovered/Resolved]
  - Oxygen saturation decreased [Unknown]
  - Right atrial pressure increased [Unknown]
  - Venous oxygen saturation decreased [Unknown]
  - Haemodynamic instability [Unknown]
  - Hypotension [Recovered/Resolved]
  - Gastrooesophageal reflux disease [Recovering/Resolving]

NARRATIVE: CASE EVENT DATE: 20190315
